FAERS Safety Report 9896096 (Version 1)
Quarter: 2014Q1

REPORT INFORMATION
  Report Type: Spontaneous
  Country: US (occurrence: US)
  Receive Date: 20140213
  Receipt Date: 20140213
  Transmission Date: 20141002
  Serious: Yes (Other)
  Sender: FDA-Public Use
  Company Number: US-BRISTOL-MYERS SQUIBB COMPANY-19583533

PATIENT
  Age: 42 Year
  Sex: Female
  Weight: 72.56 kg

DRUGS (8)
  1. ABATACEPT SUBQ INJECTION 125MG/ML [Suspect]
     Indication: PSORIATIC ARTHROPATHY
     Dosage: 125 MG/ML
     Route: 058
  2. FOLIC ACID [Concomitant]
     Dosage: CAPS
     Route: 048
  3. LYRICA [Concomitant]
     Dosage: CAPS
     Route: 048
  4. CYMBALTA [Concomitant]
     Dosage: CAPS
     Route: 048
  5. TOPAMAX [Concomitant]
     Dosage: SPR CAPS
     Route: 048
  6. METHOTREXATE TABS [Concomitant]
     Route: 048
  7. LIDODERM [Concomitant]
     Dosage: 5 % EX
  8. CALCIUM [Concomitant]
     Dosage: 500 TAB
     Route: 048

REACTIONS (3)
  - Bone neoplasm [Unknown]
  - Nasopharyngitis [Unknown]
  - Off label use [Unknown]
